FAERS Safety Report 21460276 (Version 1)
Quarter: 2022Q4

REPORT INFORMATION
  Report Type: Spontaneous
  Country: US (occurrence: US)
  Receive Date: 20221014
  Receipt Date: 20221014
  Transmission Date: 20230112
  Serious: No
  Sender: FDA-Public Use
  Company Number: US-INDIVIOR US-INDV-132608-2022

PATIENT
  Sex: Male

DRUGS (1)
  1. SUBLOCADE [Suspect]
     Active Substance: BUPRENORPHINE
     Indication: Drug dependence
     Dosage: 100 MILLIGRAM, QMO
     Route: 030
     Dates: start: 2021

REACTIONS (6)
  - Ocular hyperaemia [Not Recovered/Not Resolved]
  - Euphoric mood [Unknown]
  - Incorrect route of product administration [Recovered/Resolved]
  - Dry eye [Not Recovered/Not Resolved]
  - Insomnia [Unknown]
  - Injection site pain [Unknown]

NARRATIVE: CASE EVENT DATE: 20210101
